FAERS Safety Report 6722744-9 (Version None)
Quarter: 2010Q2

REPORT INFORMATION
  Report Type: 
  Country: None (occurrence: None)
  Receive Date: 20100511
  Receipt Date: 20100428
  Transmission Date: 20101027
  Serious: Yes (Hospitalization, Other)
  Sender: FDA-Public Use
  Company Number: 009543

PATIENT
  Sex: Female

DRUGS (18)
  1. SAMSCA [Suspect]
     Indication: OFF LABEL USE
     Dosage: 15 MG, QOD, ORAL
     Route: 048
     Dates: start: 20100204, end: 20100217
  2. SAMSCA [Suspect]
     Indication: SMALL CELL LUNG CANCER STAGE UNSPECIFIED
     Dosage: 15 MG, QOD, ORAL
     Route: 048
     Dates: start: 20100204, end: 20100217
  3. TOPOTECAN(TOPOTECAN) [Suspect]
     Dosage: SEE IMAGE
     Route: 042
     Dates: start: 20091109
  4. TOPOTECAN(TOPOTECAN) [Suspect]
     Dosage: SEE IMAGE
     Route: 042
     Dates: start: 20091202
  5. TOPOTECAN(TOPOTECAN) [Suspect]
     Dosage: SEE IMAGE
     Route: 042
     Dates: start: 20100108
  6. TOPOTECAN(TOPOTECAN) [Suspect]
     Dosage: SEE IMAGE
     Route: 042
     Dates: start: 20100203
  7. TOPOTECAN(TOPOTECAN) [Suspect]
     Dosage: SEE IMAGE
     Route: 042
     Dates: start: 20100224
  8. LACTULOSE [Concomitant]
  9. SODIUM PICOSULFATE (SODIUM PICOSULFATE) [Concomitant]
  10. OXYCODONE HCL [Concomitant]
  11. CETRIZIN (CEFATRIZINE PROPYLENGLYCOLATE SULFATE) [Concomitant]
  12. DISALUNIL (HYDROCHLOROTHIAZIDE) [Concomitant]
  13. PREDNISONE TAB [Concomitant]
  14. FUROSEMIDE [Concomitant]
  15. METOCLOPRAMIDE (METOCLOPRAMIDE) [Concomitant]
  16. HYDROCHLOROTHIAZIDE [Concomitant]
  17. MORPHINE SULFATE INJ [Concomitant]
  18. POTASSIUM CHLORIDE [Concomitant]

REACTIONS (4)
  - CONFUSIONAL STATE [None]
  - DEHYDRATION [None]
  - DIARRHOEA [None]
  - DRUG INTOLERANCE [None]
